FAERS Safety Report 20778021 (Version 1)
Quarter: 2022Q2

REPORT INFORMATION
  Report Type: Spontaneous
  Country: GB (occurrence: GB)
  Receive Date: 20220503
  Receipt Date: 20220503
  Transmission Date: 20220720
  Serious: Yes (Disabling)
  Sender: FDA-Public Use
  Company Number: None

PATIENT
  Age: 21 Year
  Sex: Female
  Weight: 59 kg

DRUGS (2)
  1. FLUOXETINE [Suspect]
     Active Substance: FLUOXETINE HYDROCHLORIDE
     Indication: Depression
     Dosage: 20MG PER DAY
     Dates: start: 20190814, end: 20211226
  2. RIGEVIDON [Concomitant]
     Indication: Contraception
     Dates: start: 20180604, end: 20220413

REACTIONS (5)
  - Loss of libido [Not Recovered/Not Resolved]
  - Depression suicidal [Not Recovered/Not Resolved]
  - Weight decreased [Recovering/Resolving]
  - Fatigue [Not Recovered/Not Resolved]
  - Boredom [Not Recovered/Not Resolved]

NARRATIVE: CASE EVENT DATE: 20190901
